FAERS Safety Report 9746013 (Version 6)
Quarter: 2014Q1

REPORT INFORMATION
  Report Type: Spontaneous
  Country: GB (occurrence: None)
  Receive Date: 20131205
  Receipt Date: 20140205
  Transmission Date: 20141002
  Serious: Yes (Death, Hospitalization, Disabling)
  Sender: FDA-Public Use
  Company Number: VAL_02843_2013

PATIENT
  Age: 71 Year
  Sex: Female
  Weight: 70 kg

DRUGS (10)
  1. METOPROLOL (METOPROLOL - METOPROLOL TARTRATE) [Suspect]
     Indication: ATRIAL FIBRILLATION
     Dosage: HALF OF A 50 MG TABLET
     Dates: start: 20130517, end: 20130517
  2. METOPROLOL (METOPROLOL - METOPROLOL TARTRATE) [Suspect]
     Indication: OFF LABEL USE
     Dosage: HALF OF A 50 MG TABLET
     Dates: start: 20130517, end: 20130517
  3. AMIODARONE (AMIODARONE) [Suspect]
     Indication: CARDIAC ARREST
     Dosage: 3 DAYS, UNTIL NOT CONTINUING?
  4. LISINOPRIL [Concomitant]
  5. BUMETANIDE [Concomitant]
  6. LEVOTHYROXINE [Concomitant]
  7. SALBUTAMOL [Concomitant]
  8. BECLOMETHASONE DIPROPIONATE [Concomitant]
  9. SPECTRAMOX [Concomitant]
  10. ANTIBIOTICS [Concomitant]

REACTIONS (22)
  - Dizziness [None]
  - Loss of consciousness [None]
  - Fall [None]
  - Wrong technique in drug usage process [None]
  - Blood pressure decreased [None]
  - Ejection fraction decreased [None]
  - Cardiac failure [None]
  - Drug administration error [None]
  - Drug prescribing error [None]
  - Wrong technique in drug usage process [None]
  - Renal failure [None]
  - Activities of daily living impaired [None]
  - Drug interaction [None]
  - Medication error [None]
  - Cold sweat [None]
  - Hypotension [None]
  - Feeling cold [None]
  - Dyspnoea [None]
  - Shock [None]
  - Hypoxia [None]
  - Syncope [None]
  - Lactic acidosis [None]
